FAERS Safety Report 14772127 (Version 1)
Quarter: 2018Q2

REPORT INFORMATION
  Report Type: Spontaneous
  Country: US (occurrence: US)
  Receive Date: 20180417
  Receipt Date: 20180417
  Transmission Date: 20180711
  Serious: No
  Sender: FDA-Public Use
  Company Number: US-009507513-1804USA006932

PATIENT
  Age: 19 Year
  Sex: Female

DRUGS (1)
  1. NEXPLANON [Suspect]
     Active Substance: ETONOGESTREL
     Dosage: 1 DF, UNK; 1 IMPLANT EVERY 3 YEARS, LEFT ARM
     Route: 059

REACTIONS (4)
  - Application site discomfort [Unknown]
  - Device breakage [Unknown]
  - Device kink [Unknown]
  - Implant site pruritus [Unknown]
